FAERS Safety Report 9258474 (Version 1)
Quarter: 2013Q2

REPORT INFORMATION
  Report Type: Spontaneous
  Country: IT (occurrence: IT)
  Receive Date: 20130426
  Receipt Date: 20130426
  Transmission Date: 20140414
  Serious: Yes (Hospitalization)
  Sender: FDA-Public Use
  Company Number: PHHY2013IT039386

PATIENT
  Sex: Male

DRUGS (6)
  1. RAMIPRIL [Suspect]
     Indication: DRUG ABUSE
     Dosage: 7 DF, TOTAL
     Route: 048
     Dates: start: 20130218, end: 20130218
  2. LEVOCETIRIZINE [Suspect]
     Indication: DRUG ABUSE
     Dosage: 15 DF, TOTAL
     Route: 048
     Dates: start: 20130218, end: 20130218
  3. ZITROMAX [Suspect]
     Indication: DRUG ABUSE
     Dosage: 3 DF, TOTAL
     Route: 048
     Dates: start: 20130218, end: 20130218
  4. PURSENNID [Suspect]
     Indication: DRUG ABUSE
     Dosage: 30 DF, TOTAL
     Route: 048
     Dates: start: 20130218, end: 20130218
  5. PARACETAMOL [Suspect]
     Indication: DRUG ABUSE
     Dosage: 4 DF, TOTAL
     Route: 048
     Dates: start: 20130218, end: 20130218
  6. ALMOTRIPTAN [Suspect]
     Indication: DRUG ABUSE
     Dosage: 5 DF, TOTAL
     Route: 048
     Dates: start: 20130218, end: 20130218

REACTIONS (3)
  - Sopor [Unknown]
  - Drug abuse [Unknown]
  - Confusional state [Unknown]
